FAERS Safety Report 17709882 (Version 1)
Quarter: 2020Q2

REPORT INFORMATION
  Report Type: Spontaneous
  Country: US (occurrence: US)
  Receive Date: 20200427
  Receipt Date: 20200427
  Transmission Date: 20200714
  Serious: No
  Sender: FDA-Public Use
  Company Number: US-009507513-2004USA007514

PATIENT
  Age: 15 Year
  Sex: Female

DRUGS (1)
  1. NEXPLANON [Suspect]
     Active Substance: ETONOGESTREL
     Indication: CONTRACEPTION
     Dosage: IMPLANT (1 DOSAGE FORM) IN LEFT ARM, 3 YEARS
     Route: 059
     Dates: start: 20200212

REACTIONS (2)
  - Menorrhagia [Not Recovered/Not Resolved]
  - Menstrual disorder [Not Recovered/Not Resolved]

NARRATIVE: CASE EVENT DATE: 20200326
